FAERS Safety Report 4413594-7 (Version None)
Quarter: 2004Q3

REPORT INFORMATION
  Report Type: 
  Country: None (occurrence: None)
  Receive Date: 20040728
  Receipt Date: 20040416
  Transmission Date: 20050211
  Serious: Yes (Hospitalization)
  Sender: FDA-Public Use
  Company Number: 2004211940FR

PATIENT
  Age: 84 Year
  Sex: Male

DRUGS (10)
  1. TRELSTAR DEPOT [Suspect]
     Indication: PROSTATE CANCER
     Dosage: 3 MG, 1/28 DAYS, INTRAMUSCULAR
     Route: 030
  2. DOLIPRANE [Concomitant]
  3. ATHYMIL [Concomitant]
  4. LASIX [Concomitant]
  5. SOTALOL HCL [Concomitant]
  6. RAMIPRIL [Concomitant]
  7. ASASANTIN [Concomitant]
  8. VASTAREL           (TRIMETAZIDINE HYDROCHLORIDE) [Concomitant]
  9. TRINIPATCH [Concomitant]
  10. SERETIDE [Concomitant]

REACTIONS (6)
  - BLOOD FOLATE INCREASED [None]
  - BLOOD IRON DECREASED [None]
  - BONE MARROW MYELOGRAM ABNORMAL [None]
  - DUODENAL POLYP [None]
  - HAEMOLYTIC ANAEMIA [None]
  - VITAMIN B12 DECREASED [None]
